FAERS Safety Report 10137160 (Version 1)
Quarter: 2014Q2

REPORT INFORMATION
  Report Type: Spontaneous
  Country: US (occurrence: None)
  Receive Date: 20140428
  Receipt Date: 20140428
  Transmission Date: 20141212
  Serious: No
  Sender: FDA-Public Use
  Company Number: None

PATIENT
  Age: 44 Year
  Sex: Female
  Weight: 58.97 kg

DRUGS (1)
  1. BOTOX [Suspect]
     Indication: ILL-DEFINED DISORDER
     Dates: start: 20140327

REACTIONS (2)
  - Dizziness [None]
  - Fatigue [None]
